FAERS Safety Report 24836343 (Version 1)
Quarter: 2025Q1

REPORT INFORMATION
  Report Type: Spontaneous
  Country: PT (occurrence: PT)
  Receive Date: 20250113
  Receipt Date: 20250113
  Transmission Date: 20250409
  Serious: Yes (Hospitalization, Other)
  Sender: HIKMA
  Company Number: PT-MLMSERVICE-20241225-PI322669-00034-1

PATIENT

DRUGS (3)
  1. AMIODARONE [Suspect]
     Active Substance: AMIODARONE
     Indication: Cardiac failure congestive
     Dosage: 200 MILLIGRAM, QD, FROM TWO YEARS
     Route: 065
  2. AMIODARONE [Suspect]
     Active Substance: AMIODARONE
     Dosage: 200 MILLIGRAM, Q12H
     Route: 048
  3. AMIODARONE [Suspect]
     Active Substance: AMIODARONE
     Indication: Atrial flutter
     Route: 042

REACTIONS (2)
  - Interstitial lung disease [Recovering/Resolving]
  - Respiratory failure [Recovering/Resolving]
